FAERS Safety Report 8080175-6 (Version None)
Quarter: 2012Q1

REPORT INFORMATION
  Report Type: 
  Country: None (occurrence: None)
  Receive Date: 20120130
  Receipt Date: 20120123
  Transmission Date: 20120608
  Serious: No
  Sender: FDA-Public Use
  Company Number: US-B.I. PHARMACEUTICALS,INC./RIDGEFIELD-2012-BP-01632BP

PATIENT
  Sex: Male

DRUGS (14)
  1. GLIMEPIRIDE [Concomitant]
     Indication: TYPE 2 DIABETES MELLITUS
     Dosage: 4 MG
     Route: 048
  2. HYDROCHLOROTHIAZIDE [Concomitant]
     Indication: HYPERTENSION
     Route: 048
  3. PROPRANOLOL [Concomitant]
     Indication: TREMOR
  4. VITAMIN TAB [Concomitant]
     Indication: SUPPLEMENTATION THERAPY
  5. BENAZEPRIL HYDROCHLORIDE [Concomitant]
     Indication: HYPERTENSION
     Route: 048
  6. CLARINEX [Concomitant]
     Indication: HYPERSENSITIVITY
     Route: 048
  7. TRADJENTA [Suspect]
     Indication: TYPE 2 DIABETES MELLITUS
     Dosage: 5 MG
     Dates: start: 20111111
  8. PROPRANOLOL [Concomitant]
     Indication: NERVOUSNESS
     Route: 048
  9. LIPITOR GENERIC [Concomitant]
     Indication: TREMOR
  10. OINTMENT [Concomitant]
     Indication: GLAUCOMA
  11. FLONASE [Concomitant]
     Indication: HYPERSENSITIVITY
  12. LUMAGAN [Concomitant]
     Indication: GLAUCOMA
  13. METFFORMIN HYDROCHLORIDE [Concomitant]
     Indication: TYPE 2 DIABETES MELLITUS
     Dosage: 2000 MG
     Route: 048
  14. LIPITOR GENERIC [Concomitant]
     Indication: NERVOUSNESS
     Route: 048

REACTIONS (1)
  - RHINORRHOEA [None]
